FAERS Safety Report 9521916 (Version 1)
Quarter: 2013Q1

REPORT INFORMATION
  Report Type: Spontaneous
  Country: US (occurrence: None)
  Receive Date: 20130305
  Receipt Date: 20130305
  Transmission Date: 20140127
  Serious: Yes (Hospitalization)
  Sender: FDA-Public Use
  Company Number: 163-21880-12072322

PATIENT
  Age: 76 Year
  Sex: Female
  Weight: 56.25 kg

DRUGS (9)
  1. REVLIMID (LENALIDOMIDE) (CAPSULES) [Suspect]
     Indication: CHRONIC LYMPHOCYTIC LEUKAEMIA
     Dosage: 10 MG, 21 IN 28 D, PO
     Route: 048
     Dates: start: 201204, end: 20120621
  2. LOSARTAN (LOSARTAN) (UNKNOWN) [Concomitant]
  3. VALSARTAN (VALSARTAN) [Concomitant]
  4. METOPROLOL ER (METOPROLOL) (TABLETS) [Concomitant]
  5. ASPIRIN (ACETYLSALICLIC ACID) [Concomitant]
  6. LEVOTHYROXINE (LEVOTHYROXINE) (UNKNOWN) [Concomitant]
  7. OMEPRAZOLE (OMEPRAZOLE) (UNKNOWN) [Concomitant]
  8. LORATADINE (LORATADINE) (UNKNOWN) [Concomitant]
  9. NOVOLIN N (INSULIN HUMAN INJECTION, ISOPHANE) (UNKNOWN) [Concomitant]

REACTIONS (4)
  - Subarachnoid haemorrhage [None]
  - Platelet count decreased [None]
  - Haemoglobin decreased [None]
  - Pneumonia [None]
